FAERS Safety Report 4740440-4 (Version None)
Quarter: 2005Q3

REPORT INFORMATION
  Report Type: 
  Country: None (occurrence: None)
  Receive Date: 20050810
  Receipt Date: 20050725
  Transmission Date: 20060218
  Serious: Yes (Life-Threatening, Hospitalization, Other)
  Sender: FDA-Public Use
  Company Number: 2005UW11057

PATIENT
  Age: 23731 Day
  Sex: Male

DRUGS (8)
  1. CRESTOR [Suspect]
     Indication: BLOOD CHOLESTEROL INCREASED
     Route: 048
     Dates: start: 20050201, end: 20050714
  2. HYDROCHLOROTHIAZIDE [Concomitant]
     Dates: start: 20050201
  3. ENALAPRIL [Concomitant]
     Dates: start: 20050201
  4. LANOXIN [Concomitant]
     Dates: start: 20050201
  5. TOPROL-XL [Concomitant]
     Route: 048
     Dates: start: 20050201
  6. COREG [Concomitant]
  7. NITRO-DUR [Concomitant]
  8. ASPIRIN [Concomitant]

REACTIONS (3)
  - RENAL FAILURE ACUTE [None]
  - RHABDOMYOLYSIS [None]
  - VOMITING [None]
